FAERS Safety Report 17591507 (Version 1)
Quarter: 2020Q1

REPORT INFORMATION
  Report Type: Spontaneous
  Country: US (occurrence: US)
  Receive Date: 20200327
  Receipt Date: 20200327
  Transmission Date: 20200409
  Serious: No
  Sender: FDA-Public Use
  Company Number: US-NEOS THERAPEUTICS, LP-2020NEO00014

PATIENT
  Age: 18 Year
  Sex: Male
  Weight: 56.69 kg

DRUGS (4)
  1. COTEMPLA XR-ODT [Suspect]
     Active Substance: METHYLPHENIDATE
     Dosage: 1 TABLETS, 1X/DAY
     Route: 060
  2. COTEMPLA XR-ODT [Suspect]
     Active Substance: METHYLPHENIDATE
     Dosage: 1.5 TABLETS, 1X/DAY
     Route: 060
  3. UNSPECIFIED POTENTIAL PRODUCT(S) [Concomitant]
  4. COTEMPLA XR-ODT [Suspect]
     Active Substance: METHYLPHENIDATE
     Dosage: 2 TABLETS, 1X/DAY
     Route: 060

REACTIONS (3)
  - Off label use [Not Recovered/Not Resolved]
  - Anxiety [Recovered/Resolved]
  - Nervousness [Recovered/Resolved]

NARRATIVE: CASE EVENT DATE: 202002
